FAERS Safety Report 4837794-7 (Version None)
Quarter: 2005Q4

REPORT INFORMATION
  Report Type: 
  Country: None (occurrence: None)
  Receive Date: 20051128
  Receipt Date: 20051118
  Transmission Date: 20060501
  Serious: Yes (Hospitalization, Disabling)
  Sender: FDA-Public Use
  Company Number: US-MERCK-0511USA03494

PATIENT
  Sex: Female
  Weight: 108 kg

DRUGS (2)
  1. VIOXX [Suspect]
     Route: 048
     Dates: end: 20030401
  2. [THERAPY UNSPECIFIED] [Concomitant]
     Indication: DIABETES MELLITUS
     Route: 065

REACTIONS (5)
  - ANXIETY [None]
  - ARTERIAL OCCLUSIVE DISEASE [None]
  - CARDIAC DISORDER [None]
  - CEREBROVASCULAR ACCIDENT [None]
  - DEPRESSION [None]
